FAERS Safety Report 23057321 (Version 1)
Quarter: 2023Q4

REPORT INFORMATION
  Report Type: Report from Study
  Country: US (occurrence: US)
  Receive Date: 20231012
  Receipt Date: 20231012
  Transmission Date: 20240110
  Serious: Yes (Death, Other)
  Sender: FDA-Public Use
  Company Number: US-ABBVIE-5446308

PATIENT
  Age: 78 Year
  Sex: Male

DRUGS (3)
  1. DUOPA [Suspect]
     Active Substance: CARBIDOPA\LEVODOPA
     Indication: Parkinson^s disease
     Dosage: ADMINISTER CONTENTS OF 1 CASSETTE VIA PEG-J FOR UP TO 16 HOURS EACH DAY. MORNING DOSE: 11 ML, CON...
     Route: 050
     Dates: start: 202204
  2. DUOPA [Suspect]
     Active Substance: CARBIDOPA\LEVODOPA
  3. NUPLAZID [Concomitant]
     Active Substance: PIMAVANSERIN TARTRATE
     Indication: Product used for unknown indication

REACTIONS (2)
  - Death [Fatal]
  - Hepatic failure [Unknown]

NARRATIVE: CASE EVENT DATE: 20230923
